FAERS Safety Report 25072442 (Version 1)
Quarter: 2025Q1

REPORT INFORMATION
  Report Type: Other
  Country: GB (occurrence: GB)
  Receive Date: 20250313
  Receipt Date: 20250313
  Transmission Date: 20250408
  Serious: Yes (Disabling, Other)
  Sender: LUPIN
  Company Number: None

PATIENT
  Age: 31 Year
  Sex: Female
  Weight: 59 kg

DRUGS (2)
  1. SERTRALINE [Suspect]
     Active Substance: SERTRALINE HYDROCHLORIDE
     Indication: Depression
     Route: 065
  2. Rigevidon 21+7 [Concomitant]
     Indication: Contraception
     Route: 065

REACTIONS (3)
  - Self-injurious ideation [Not Recovered/Not Resolved]
  - Lethargy [Recovered/Resolved]
  - Apathy [Recovered/Resolved]

NARRATIVE: CASE EVENT DATE: 20190101
